FAERS Safety Report 14635836 (Version 1)
Quarter: 2018Q1

REPORT INFORMATION
  Report Type: Spontaneous
  Country: US (occurrence: US)
  Receive Date: 20180314
  Receipt Date: 20180314
  Transmission Date: 20180509
  Serious: Yes (Other)
  Sender: FDA-Public Use
  Company Number: PHHY2018US036454

PATIENT
  Age: 58 Year
  Sex: Male

DRUGS (1)
  1. CEFTRIAXONE. [Suspect]
     Active Substance: CEFTRIAXONE
     Indication: OSTEOMYELITIS
     Dosage: UNK
     Route: 042

REACTIONS (5)
  - Serum sickness-like reaction [Recovered/Resolved]
  - Pulmonary embolism [Recovered/Resolved]
  - Leukocytosis [Recovered/Resolved]
  - Inflammatory marker increased [Recovered/Resolved]
  - Eosinophilia [Recovered/Resolved]
